FAERS Safety Report 10174496 (Version 1)
Quarter: 2014Q2

REPORT INFORMATION
  Report Type: Spontaneous
  Country: US (occurrence: US)
  Receive Date: 20140515
  Receipt Date: 20140515
  Transmission Date: 20141212
  Serious: No
  Sender: FDA-Public Use
  Company Number: US-BAYER-2014-071102

PATIENT
  Age: 60 Year
  Sex: Female

DRUGS (3)
  1. PRAVASTATIN [Concomitant]
     Indication: BLOOD CHOLESTEROL INCREASED
     Dosage: UNK
  2. COZAAR [Concomitant]
     Indication: HYPERTENSION
     Dosage: UNK
  3. ESTRADIOL HEMIHYDRATE [Suspect]
     Indication: HORMONE REPLACEMENT THERAPY
     Dosage: UNK
     Route: 062
     Dates: start: 201402

REACTIONS (2)
  - Night sweats [Not Recovered/Not Resolved]
  - Product adhesion issue [None]
